FAERS Safety Report 23556819 (Version 1)
Quarter: 2024Q1

REPORT INFORMATION
  Report Type: Spontaneous
  Country: CN (occurrence: CN)
  Receive Date: 20240223
  Receipt Date: 20240223
  Transmission Date: 20240410
  Serious: Yes (Other)
  Sender: FDA-Public Use
  Company Number: CN-SUN PHARMACEUTICAL INDUSTRIES LTD-2024R1-432393

PATIENT
  Age: 57 Year
  Sex: Male

DRUGS (3)
  1. DEXAMETHASONE [Suspect]
     Active Substance: DEXAMETHASONE
     Indication: Subdiaphragmatic abscess
     Dosage: UNK
     Route: 065
  2. MORPHINE [Suspect]
     Active Substance: MORPHINE
     Indication: Subdiaphragmatic abscess
     Dosage: UNK
     Route: 065
  3. CEFOPERAZONE [Suspect]
     Active Substance: CEFOPERAZONE
     Indication: Subdiaphragmatic abscess
     Dosage: UNK
     Route: 065

REACTIONS (1)
  - Condition aggravated [Unknown]
